FAERS Safety Report 7530633-5 (Version None)
Quarter: 2011Q2

REPORT INFORMATION
  Report Type: 
  Country: None (occurrence: None)
  Receive Date: 20110607
  Receipt Date: 20110524
  Transmission Date: 20111010
  Serious: Yes (Death, Other)
  Sender: FDA-Public Use
  Company Number: RU-BAYER-2010-003117

PATIENT
  Age: 75 Year
  Sex: Female

DRUGS (9)
  1. ASPIRIN [Suspect]
     Indication: THROMBOSIS PROPHYLAXIS
     Dosage: 125 MG, QD
     Route: 048
     Dates: start: 20101201, end: 20101201
  2. ENALAPRIL MALEATE [Concomitant]
     Indication: BLOOD PRESSURE DECREASED
  3. IDEBENONE [Concomitant]
     Dosage: 30 MG, UNK
     Dates: end: 20101201
  4. SULFOCAMPHOCAIN [Concomitant]
  5. CURANTYL [Concomitant]
     Dosage: 25 MG, TID
     Dates: end: 20101201
  6. CAVINTON [Concomitant]
     Dosage: 10 MG, TID
  7. GLIATILIN [Concomitant]
     Dosage: 400 MG, TID
     Dates: end: 20101201
  8. MILGAMMA [Concomitant]
     Dosage: UNK
     Dates: start: 20090101, end: 20101201
  9. AMLODIPINE [Concomitant]
     Dosage: UNK

REACTIONS (9)
  - SKIN EXFOLIATION [None]
  - JOINT SWELLING [None]
  - INJECTION SITE HAEMATOMA [None]
  - ANAPHYLACTIC REACTION [None]
  - ERYTHEMA MULTIFORME [None]
  - ERUCTATION [None]
  - LYMPHATIC DISORDER [None]
  - OEDEMA PERIPHERAL [None]
  - BLOOD PRESSURE ABNORMAL [None]
